FAERS Safety Report 13565509 (Version 5)
Quarter: 2017Q3

REPORT INFORMATION
  Report Type: Spontaneous
  Country: US (occurrence: US)
  Receive Date: 20170519
  Receipt Date: 20170809
  Transmission Date: 20171127
  Serious: No
  Sender: FDA-Public Use
  Company Number: US-ACTELION-A-NJ2017-154068

PATIENT
  Age: 5 Year
  Sex: Male

DRUGS (2)
  1. TRACLEER [Suspect]
     Active Substance: BOSENTAN
     Indication: PULMONARY ARTERIAL HYPERTENSION
     Dosage: 15.625 MG, BID
     Route: 048
     Dates: start: 201703, end: 20170605
  2. SILDENAFIL CITRATE. [Concomitant]
     Active Substance: SILDENAFIL CITRATE

REACTIONS (7)
  - Alanine aminotransferase increased [Recovering/Resolving]
  - Viral infection [Unknown]
  - Somnolence [Unknown]
  - Blood alkaline phosphatase increased [Recovering/Resolving]
  - Dermatitis diaper [Unknown]
  - Aspartate aminotransferase increased [Recovering/Resolving]
  - Liver function test abnormal [Recovering/Resolving]
